FAERS Safety Report 12889708 (Version 1)
Quarter: 2016Q4

REPORT INFORMATION
  Report Type: Spontaneous
  Country: JP (occurrence: JP)
  Receive Date: 20161027
  Receipt Date: 20161027
  Transmission Date: 20170207
  Serious: Yes (Hospitalization)
  Sender: FDA-Public Use
  Company Number: JP-TEVA-2016-JP-002394J

PATIENT
  Age: 53 Year
  Sex: Female
  Weight: 54 kg

DRUGS (3)
  1. EURODIN 2MG. TABLETS [Suspect]
     Active Substance: ESTAZOLAM
     Indication: PRODUCT USED FOR UNKNOWN INDICATION
     Route: 048
  2. MIGSIS [Suspect]
     Active Substance: LOMERIZINE HYDROCHLORIDE
     Route: 048
     Dates: start: 20160314
  3. HALCION [Suspect]
     Active Substance: TRIAZOLAM
     Route: 048

REACTIONS (6)
  - Electrocardiogram QT prolonged [Unknown]
  - Chest pain [Unknown]
  - Overdose [Unknown]
  - Fall [Unknown]
  - Sinus bradycardia [Recovered/Resolved]
  - Palpitations [Unknown]

NARRATIVE: CASE EVENT DATE: 20160224
